FAERS Safety Report 10552858 (Version 1)
Quarter: 2014Q4

REPORT INFORMATION
  Report Type: Other
  Country: GB (occurrence: GB)
  Receive Date: 20141029
  Receipt Date: 20141029
  Transmission Date: 20150529
  Serious: Yes (Other)
  Sender: FDA-Public Use
  Company Number: GB-MYLANLABS-2014M1007831

PATIENT

DRUGS (2)
  1. PAROXETINE [Suspect]
     Active Substance: PAROXETINE\PAROXETINE HYDROCHLORIDE
     Indication: DEPRESSION
     Dates: start: 200411, end: 201407
  2. CHAMPIX [Suspect]
     Active Substance: VARENICLINE TARTRATE
     Indication: SMOKING CESSATION THERAPY
     Dosage: 12 WEEK COURSE FINISHED. DOSAGE WAS AS DIRECTED, GRADUALLY REDUCING).
     Dates: start: 20140407, end: 20140630

REACTIONS (6)
  - Restlessness [Recovering/Resolving]
  - Abnormal dreams [Recovering/Resolving]
  - Withdrawal syndrome [Recovering/Resolving]
  - Depression [Recovering/Resolving]
  - Crying [Recovering/Resolving]
  - Agitation [Recovering/Resolving]
